FAERS Safety Report 10101684 (Version 1)
Quarter: 2014Q2

REPORT INFORMATION
  Report Type: Spontaneous
  Country: JP (occurrence: None)
  Receive Date: 20140422
  Receipt Date: 20140422
  Transmission Date: 20141212
  Serious: Yes (Other)
  Sender: FDA-Public Use
  Company Number: 2007JP001336

PATIENT
  Age: 7 Year
  Sex: Female

DRUGS (12)
  1. PROTOPIC [Suspect]
     Indication: DERMATITIS ATOPIC
     Route: 061
  2. WHITE PETROLEUM (PETROLATUM) [Concomitant]
  3. LOCOID (HYDROCORTISONE BUTYRATE) [Concomitant]
  4. HIRUDOID /00723701/ (HEPARINOID) [Concomitant]
  5. RINDERON-V (BETAMETHASONE VALERATE) [Concomitant]
  6. FULMETA (MOMETASONE FUROATE) [Concomitant]
  7. BETAMETHASONE BUTYRATE PROPIONATE [Concomitant]
  8. CALONAL (ACETAMINOPHEN) [Concomitant]
  9. CALRITIN /00413701/ (GLICLAZIDE) [Concomitant]
  10. ZADITEN (KETOTIFEN FUMARATE) [Concomitant]
  11. ARASENA A (VIDARABINE) [Concomitant]
  12. CEFZON (CEFDINIR) [Concomitant]

REACTIONS (4)
  - Glomerulonephritis [None]
  - Off label use [None]
  - Herpes simplex [None]
  - Folliculitis [None]
